FAERS Safety Report 11309625 (Version 1)
Quarter: 2015Q3

REPORT INFORMATION
  Report Type: Other
  Country: FR (occurrence: FR)
  Receive Date: 20150724
  Receipt Date: 20150724
  Transmission Date: 20151125
  Serious: Yes (Hospitalization)
  Sender: FDA-Public Use
  Company Number: FR-ENDO PHARMACEUTICALS INC-2015-001861

PATIENT
  Age: 38 Year
  Sex: Male

DRUGS (3)
  1. BACLOFEN TABLETS [Suspect]
     Active Substance: BACLOFEN
     Route: 065
     Dates: start: 201403, end: 2014
  2. BACLOFEN TABLETS [Suspect]
     Active Substance: BACLOFEN
     Indication: ALCOHOLISM
     Route: 065
     Dates: start: 201404
  3. BACLOFEN TABLETS [Suspect]
     Active Substance: BACLOFEN
     Route: 065
     Dates: start: 20131112, end: 2014

REACTIONS (1)
  - Delirium [Unknown]

NARRATIVE: CASE EVENT DATE: 201405
